FAERS Safety Report 11340476 (Version 3)
Quarter: 2015Q4

REPORT INFORMATION
  Report Type: Spontaneous
  Country: TR (occurrence: TR)
  Receive Date: 20150805
  Receipt Date: 20151202
  Transmission Date: 20160304
  Serious: Yes (Hospitalization)
  Sender: FDA-Public Use
  Company Number: TR-SA-2015SA111964

PATIENT
  Age: 25 Year
  Sex: Female
  Weight: 53 kg

DRUGS (3)
  1. PROZAC [Concomitant]
     Active Substance: FLUOXETINE HYDROCHLORIDE
     Indication: MENTAL DISORDER
     Dosage: 1 X1?20 MG
     Route: 048
     Dates: start: 201507
  2. SOLOSTAR [Concomitant]
     Active Substance: DEVICE
     Dates: start: 20150725, end: 20150725
  3. LANTUS SOLOSTAR [Suspect]
     Active Substance: INSULIN GLARGINE
     Indication: SUICIDE ATTEMPT
     Route: 065
     Dates: start: 20150725, end: 20150725

REACTIONS (4)
  - Hypoglycaemia [Recovered/Resolved]
  - Hyperhidrosis [Recovered/Resolved]
  - Suicide attempt [Unknown]
  - Hyperinsulinaemia [Recovered/Resolved]

NARRATIVE: CASE EVENT DATE: 20150725
